FAERS Safety Report 4295270-7 (Version None)
Quarter: 2004Q1

REPORT INFORMATION
  Report Type: 
  Country: None (occurrence: None)
  Receive Date: 20040216
  Receipt Date: 20030507
  Transmission Date: 20041129
  Serious: No
  Sender: FDA-Public Use
  Company Number: US-GLAXOSMITHKLINE-A0407794A

PATIENT
  Sex: Female

DRUGS (3)
  1. LAMICTAL [Suspect]
     Dosage: 75MG PER DAY
     Route: 048
  2. WELLBUTRIN [Concomitant]
     Dosage: 100MG TWICE PER DAY
     Route: 048
  3. ZOLOFT [Concomitant]

REACTIONS (6)
  - ANAPHYLACTOID REACTION [None]
  - CHILLS [None]
  - LOSS OF CONSCIOUSNESS [None]
  - NAUSEA [None]
  - PAIN [None]
  - RESTLESSNESS [None]
